FAERS Safety Report 7938344-9 (Version None)
Quarter: 2011Q4

REPORT INFORMATION
  Report Type: 
  Country: None (occurrence: None)
  Receive Date: 20111123
  Receipt Date: 20111114
  Transmission Date: 20120403
  Serious: Yes (Hospitalization, Other)
  Sender: FDA-Public Use
  Company Number: CA-ASTRAZENECA-2011SE68817

PATIENT
  Age: 62 Year
  Sex: Female
  Weight: 59 kg

DRUGS (8)
  1. INDAPAMIDE [Suspect]
  2. DIURETICS [Concomitant]
  3. ASPIRIN [Concomitant]
  4. STUDY DRUG [Suspect]
     Route: 048
  5. ATENOLOL [Concomitant]
  6. NOVOLOG [Concomitant]
     Route: 058
  7. ATACAND [Suspect]
     Route: 048
  8. NOVORAPID [Concomitant]

REACTIONS (5)
  - HYPERGLYCAEMIA [None]
  - HYPOCALCAEMIA [None]
  - HYPOMAGNESAEMIA [None]
  - RENAL FAILURE ACUTE [None]
  - FATIGUE [None]
